FAERS Safety Report 19258322 (Version 2)
Quarter: 2021Q2

REPORT INFORMATION
  Report Type: Spontaneous
  Country: FR (occurrence: FR)
  Receive Date: 20210514
  Receipt Date: 20210525
  Transmission Date: 20210717
  Serious: Yes (Hospitalization)
  Sender: FDA-Public Use
  Company Number: FR-TEVA-2021-FR-1910448

PATIENT
  Age: 78 Year
  Sex: Male
  Weight: 50 kg

DRUGS (3)
  1. UROREC [Concomitant]
     Active Substance: SILODOSIN
  2. METHOTREXATE. [Suspect]
     Active Substance: METHOTREXATE
     Indication: RHEUMATOID ARTHRITIS
     Dosage: 2.5 TO 5 MG / DAY
     Route: 048
     Dates: start: 20210312, end: 20210326
  3. CORTANCYL [Concomitant]
     Active Substance: PREDNISONE

REACTIONS (3)
  - Mucosal inflammation [Not Recovered/Not Resolved]
  - Pancytopenia [Recovered/Resolved]
  - Urinary retention [Not Recovered/Not Resolved]

NARRATIVE: CASE EVENT DATE: 20210326
